FAERS Safety Report 17828743 (Version 2)
Quarter: 2020Q2

REPORT INFORMATION
  Report Type: Report from Study
  Country: CA (occurrence: CA)
  Receive Date: 20200527
  Receipt Date: 20200605
  Transmission Date: 20200714
  Serious: Yes (Hospitalization)
  Sender: FDA-Public Use
  Company Number: CA-ROCHE-2597299

PATIENT
  Sex: Female

DRUGS (4)
  1. ACALABRUTINIB. [Concomitant]
     Active Substance: ACALABRUTINIB
  2. RITUXAN [Suspect]
     Active Substance: RITUXIMAB
     Indication: THROMBOCYTOPENIA
     Dosage: RECEIVED 4 TREATMENTS ABOUT 10 YEARS AGO. NOT THROUGH RPAP AND RECEIVED 100MG (WEEKLY) X 4 DOSES IN
     Route: 042
     Dates: start: 202004, end: 20200522
  3. RITUXAN [Suspect]
     Active Substance: RITUXIMAB
     Indication: ANAEMIA
  4. PREDNISONE. [Concomitant]
     Active Substance: PREDNISONE

REACTIONS (3)
  - Peptic ulcer [Unknown]
  - Platelet count decreased [Unknown]
  - Haemoglobin decreased [Unknown]
